FAERS Safety Report 8246786 (Version 13)
Quarter: 2014Q1

REPORT INFORMATION
  Report Type: Report from Study
  Country: US (occurrence: US)
  Receive Date: 20111116
  Receipt Date: 20140311
  Transmission Date: 20141002
  Serious: Yes (Hospitalization, Other)
  Sender: FDA-Public Use
  Company Number: PHEH2011US08280

PATIENT
  Sex: Male

DRUGS (12)
  1. TASIGNA [Suspect]
     Indication: CHRONIC MYELOID LEUKAEMIA
     Dosage: 150 MG, BID
     Route: 048
     Dates: start: 20120420
  2. TASIGNA [Suspect]
     Dosage: 300 MG, BID
     Route: 048
  3. TASIGNA [Suspect]
     Dosage: 150 MG, BID
     Route: 048
     Dates: start: 20140105
  4. PROMETHAZINE [Suspect]
     Indication: NAUSEA
     Dosage: 25 MG, Q5H
  5. INSPRA [Concomitant]
     Dosage: 50 MG, BID
  6. NOVOLOG [Concomitant]
     Dosage: 250-300 UNITS PER DAY
  7. CATAPRES-TTS-3 [Concomitant]
     Dosage: UNK UKN, UNK
  8. NITROGLYCERIN [Concomitant]
     Indication: PAIN
     Dosage: 4 MG, PRN
  9. ATIVAN [Concomitant]
     Dosage: 1 MG, AS NEEDED
  10. PERCOCET [Concomitant]
     Dosage: UNK UKN, UNK
  11. RANITIDINE HYDROCHLORIDE [Concomitant]
     Dosage: 1 MG, AS NEEDED
  12. LOPROX [Concomitant]
     Dosage: UNK UKN, UNK

REACTIONS (27)
  - Coronary artery occlusion [Unknown]
  - Chest discomfort [Unknown]
  - Chest pain [Recovered/Resolved]
  - Palpitations [Unknown]
  - Hypertriglyceridaemia [Unknown]
  - Haemorrhage [Unknown]
  - Cardiac disorder [Unknown]
  - Coronary artery disease [Unknown]
  - Blood pressure increased [Unknown]
  - Diabetes mellitus [Unknown]
  - Blood glucose increased [Unknown]
  - Gastric disorder [Unknown]
  - Hypopnoea [Unknown]
  - Blood urine present [Unknown]
  - Diarrhoea [Unknown]
  - Dizziness [Unknown]
  - Headache [Unknown]
  - Cough [Unknown]
  - Rhinorrhoea [Unknown]
  - Pruritus [Unknown]
  - Herpes zoster [Unknown]
  - Malaise [Unknown]
  - Nausea [Not Recovered/Not Resolved]
  - Vomiting [Unknown]
  - Weight decreased [Unknown]
  - Depressed mood [Unknown]
  - Incorrect dose administered [Unknown]
